FAERS Safety Report 7767627-0 (Version None)
Quarter: 2011Q3

REPORT INFORMATION
  Report Type: 
  Country: None (occurrence: None)
  Receive Date: 20110919
  Receipt Date: 20110907
  Transmission Date: 20111222
  Serious: Yes (Hospitalization)
  Sender: FDA-Public Use
  Company Number: DKLU1072941

PATIENT
  Age: 14 Month
  Sex: Male

DRUGS (7)
  1. MULTIVITAMIN [Concomitant]
  2. METOCLOPRAMIDE [Concomitant]
  3. PREVACID [Concomitant]
  4. MIRALAX POWDER (MACROGOL 3350) (CAPSULE) [Concomitant]
  5. KEPPRA [Concomitant]
  6. SABRIL [Suspect]
     Indication: INFANTILE SPASMS
     Dosage: 250 MG MILLIGRAM(S), 2 IN 1 D, ORAL
     Route: 048
     Dates: start: 20110801, end: 20110101
  7. DESMOPRESSIN ACETATE [Concomitant]

REACTIONS (3)
  - RESPIRATORY ARREST [None]
  - CEREBRAL CYST [None]
  - CONVULSION [None]
